FAERS Safety Report 8102611-9 (Version None)
Quarter: 2011Q4

REPORT INFORMATION
  Report Type: 
  Country: None (occurrence: None)
  Receive Date: 20111222
  Receipt Date: 20110829
  Transmission Date: 20120403
  Serious: Yes (Hospitalization)
  Sender: FDA-Public Use
  Company Number: UTC-009819

PATIENT
  Age: 38 Year
  Sex: Female

DRUGS (1)
  1. TYVASO [Suspect]
     Indication: PULMONARY ARTERIAL HYPERTENSION
     Dosage: 18 - 54 MICROGRAMS 4 SESSIONS (4 IN 1 D), INHALATION
     Route: 055
     Dates: start: 20100818

REACTIONS (2)
  - VOMITING [None]
  - DYSPNOEA [None]
